FAERS Safety Report 21154076 (Version 1)
Quarter: 2022Q3

REPORT INFORMATION
  Report Type: Spontaneous
  Country: US (occurrence: US)
  Receive Date: 20220801
  Receipt Date: 20220801
  Transmission Date: 20221027
  Serious: Yes (Other)
  Sender: FDA-Public Use
  Company Number: US-BRISTOL-MYERS SQUIBB COMPANY-2022-079624

PATIENT
  Age: 81 Year
  Sex: Female
  Weight: 68.95 kg

DRUGS (1)
  1. INREBIC [Suspect]
     Active Substance: FEDRATINIB HYDROCHLORIDE
     Indication: Product used for unknown indication
     Route: 065
     Dates: start: 20220722

REACTIONS (3)
  - Sarcoidosis [Unknown]
  - Anaemia [Unknown]
  - Abdominal distension [Unknown]
